FAERS Safety Report 4679619-9 (Version None)
Quarter: 2005Q2

REPORT INFORMATION
  Report Type: 
  Country: None (occurrence: None)
  Receive Date: 20050311
  Receipt Date: 20050311
  Transmission Date: 20051028
  Serious: Yes (Other)
  Sender: FDA-Public Use
  Company Number: None

PATIENT
  Age: 26 Year
  Sex: Male
  Weight: 36.2878 kg

DRUGS (2)
  1. GLYCOLAX [Suspect]
     Indication: CEREBRAL PALSY
     Dosage: RECENTLY
  2. GLYCOLAX [Suspect]
     Indication: CONSTIPATION
     Dosage: RECENTLY

REACTIONS (3)
  - DIARRHOEA [None]
  - INFREQUENT BOWEL MOVEMENTS [None]
  - THERAPEUTIC RESPONSE UNEXPECTED WITH DRUG SUBSTITUTION [None]
